FAERS Safety Report 9424777 (Version 1)
Quarter: 2013Q3

REPORT INFORMATION
  Report Type: Spontaneous
  Country: JP (occurrence: JP)
  Receive Date: 20130729
  Receipt Date: 20130729
  Transmission Date: 20140515
  Serious: Yes (Other)
  Sender: FDA-Public Use
  Company Number: JP-PFIZER INC-2013219547

PATIENT
  Sex: Male

DRUGS (3)
  1. LIPITOR [Suspect]
     Dosage: UNK
     Route: 048
  2. ATELEC [Concomitant]
     Dosage: UNK
  3. TANATRIL [Concomitant]
     Dosage: UNK

REACTIONS (1)
  - Eosinophilic fasciitis [Unknown]
